FAERS Safety Report 4994833-0 (Version None)
Quarter: 2006Q2

REPORT INFORMATION
  Report Type: 
  Country: None (occurrence: None)
  Receive Date: 20060508
  Receipt Date: 20060428
  Transmission Date: 20061013
  Serious: Yes (Other)
  Sender: FDA-Public Use
  Company Number: PHBS2006CH06303

PATIENT
  Age: 78 Year
  Sex: Male

DRUGS (3)
  1. STALEVO 100 [Suspect]
     Indication: PARKINSON'S DISEASE
     Dosage: 3 TAB/D
     Route: 048
  2. EXELON [Suspect]
     Indication: PARKINSON'S DISEASE
     Dosage: 9 MG/D
     Route: 048
  3. REQUIP [Suspect]
     Indication: PARKINSON'S DISEASE
     Dosage: 6 MG/D
     Route: 048

REACTIONS (3)
  - CATECHOLAMINES URINE [None]
  - HYPERTENSION [None]
  - URINE ANALYSIS ABNORMAL [None]
